FAERS Safety Report 18052570 (Version 1)
Quarter: 2020Q3

REPORT INFORMATION
  Report Type: Spontaneous
  Country: ES (occurrence: ES)
  Receive Date: 20200722
  Receipt Date: 20200722
  Transmission Date: 20201103
  Serious: Yes (Other)
  Sender: FDA-Public Use
  Company Number: ES-AUROBINDO-AUR-APL-2020-035585

PATIENT
  Age: 46 Year
  Sex: Male

DRUGS (9)
  1. FLUOROURACIL. [Concomitant]
     Active Substance: FLUOROURACIL
     Indication: RECTAL ADENOCARCINOMA
     Dosage: 225 MILLIGRAM/SQ. METER, ONCE A DAY,7 D/WK,CYCLE
     Route: 065
     Dates: start: 2016, end: 2016
  2. OXALIPLATIN. [Suspect]
     Active Substance: OXALIPLATIN
     Indication: ADENOCARCINOMA OF COLON
     Dosage: UNK, CYCLE
     Route: 065
     Dates: start: 2016
  3. FOLINIC ACID [Concomitant]
     Active Substance: LEUCOVORIN
     Indication: ADENOCARCINOMA OF COLON
     Dosage: UNK
     Route: 065
     Dates: start: 2016
  4. OXALIPLATIN. [Suspect]
     Active Substance: OXALIPLATIN
     Indication: RECTAL ADENOCARCINOMA
  5. FOLINIC ACID [Concomitant]
     Active Substance: LEUCOVORIN
     Indication: RECTAL ADENOCARCINOMA
  6. FLUOROURACIL. [Suspect]
     Active Substance: FLUOROURACIL
     Indication: PRODUCT USED FOR UNKNOWN INDICATION
     Dosage: UNK
     Route: 065
     Dates: start: 2016
  7. PANITUMUMAB [Concomitant]
     Active Substance: PANITUMUMAB
     Indication: ADENOCARCINOMA OF COLON
     Dosage: UNK, CYCLE
     Route: 065
     Dates: start: 2016
  8. VECTIBIX [Suspect]
     Active Substance: PANITUMUMAB
     Indication: RECTAL ADENOCARCINOMA
     Dosage: UNK
     Route: 065
     Dates: start: 2016
  9. FLUOROURACIL. [Concomitant]
     Active Substance: FLUOROURACIL
     Indication: ADENOCARCINOMA OF COLON
     Dosage: UNK,MODIFIED
     Route: 065

REACTIONS (2)
  - Skin toxicity [Unknown]
  - Polyneuropathy [Unknown]
